FAERS Safety Report 17124567 (Version 1)
Quarter: 2019Q4

REPORT INFORMATION
  Report Type: Spontaneous
  Country: GB (occurrence: GB)
  Receive Date: 20191206
  Receipt Date: 20191206
  Transmission Date: 20200122
  Serious: Yes (Other)
  Sender: FDA-Public Use
  Company Number: GB-GALDERMA-GB19063908

PATIENT
  Age: 47 Year
  Sex: Female
  Weight: 62 kg

DRUGS (8)
  1. BEPANTHEN PLUS [Concomitant]
     Indication: PRODUCT USED FOR UNKNOWN INDICATION
     Dosage: USE AS DIRECTED
     Route: 065
     Dates: start: 20180904, end: 20180911
  2. IVERMECTIN. [Suspect]
     Active Substance: IVERMECTIN
     Indication: PRODUCT USED FOR UNKNOWN INDICATION
     Route: 065
  3. BRIMONIDINE [Suspect]
     Active Substance: BRIMONIDINE TARTRATE
     Indication: PRODUCT USED FOR UNKNOWN INDICATION
     Dosage: A PEA SIZED AMOUNT TO EACH FACIAL AREA
     Route: 065
     Dates: start: 20171009
  4. OXYTETRACYCLINE [Concomitant]
     Active Substance: OXYTETRACYCLINE
     Indication: PRODUCT USED FOR UNKNOWN INDICATION
     Route: 065
     Dates: start: 20180917, end: 20181015
  5. TIMODINE [Concomitant]
     Indication: PRODUCT USED FOR UNKNOWN INDICATION
     Route: 065
     Dates: start: 20180904, end: 20180911
  6. MICONAZOLE. [Concomitant]
     Active Substance: MICONAZOLE
     Indication: PRODUCT USED FOR UNKNOWN INDICATION
     Dosage: UNTIL HEALED AND THEN 10 DAYS
     Route: 065
     Dates: start: 20181009, end: 20181010
  7. CLOTRIMAZOLE. [Concomitant]
     Active Substance: CLOTRIMAZOLE
     Indication: PRODUCT USED FOR UNKNOWN INDICATION
     Dosage: USE PESSARY NOW AND CREAM TWICE DAILY FOR 1 WEEK?PHARMACEUTICAL DOSE FORM (FREE TEXT) : 180
     Route: 065
     Dates: start: 20180904, end: 20180905
  8. LYMECYCLINE [Concomitant]
     Active Substance: LYMECYCLINE
     Indication: PRODUCT USED FOR UNKNOWN INDICATION
     Dosage: PHARMACEUTICAL DOSE FORM (FREE TEXT) : 5
     Route: 065
     Dates: start: 20180723, end: 20180917

REACTIONS (5)
  - Blister [Unknown]
  - Skin exfoliation [Unknown]
  - Swelling face [Unknown]
  - Rash erythematous [Recovering/Resolving]
  - Scab [Unknown]
